FAERS Safety Report 16735164 (Version 1)
Quarter: 2019Q3

REPORT INFORMATION
  Report Type: Spontaneous
  Country: IT (occurrence: IT)
  Receive Date: 20190823
  Receipt Date: 20190823
  Transmission Date: 20191005
  Serious: Yes (Disabling)
  Sender: FDA-Public Use
  Company Number: IT-SA-2019SA225096

PATIENT
  Age: 63 Year
  Sex: Female
  Weight: 60 kg

DRUGS (6)
  1. CYCLOPHOSPHAMIDE. [Suspect]
     Active Substance: CYCLOPHOSPHAMIDE
     Dosage: 1080 MG, UNK
     Route: 041
     Dates: start: 20061127, end: 20061127
  2. EPIRUBICIN [Suspect]
     Active Substance: EPIRUBICIN
     Dosage: 160 MG, UNK
     Route: 041
     Dates: start: 20061127, end: 20061127
  3. EPIRUBICIN [Suspect]
     Active Substance: EPIRUBICIN
     Indication: BREAST CANCER FEMALE
     Dosage: 160 MG, UNK
     Route: 041
     Dates: start: 20060628, end: 20060628
  4. DOCETAXEL. [Suspect]
     Active Substance: DOCETAXEL
     Indication: BREAST CANCER FEMALE
     Dosage: 180 MG, UNK
     Route: 041
     Dates: start: 20060628, end: 20060628
  5. CYCLOPHOSPHAMIDE. [Suspect]
     Active Substance: CYCLOPHOSPHAMIDE
     Indication: BREAST CANCER FEMALE
     Dosage: 1080 MG, UNK
     Route: 041
     Dates: start: 20060628, end: 20060628
  6. DOCETAXEL. [Suspect]
     Active Substance: DOCETAXEL
     Dosage: 180 MG, UNK
     Route: 041
     Dates: start: 20061127, end: 20061127

REACTIONS (6)
  - Dyspnoea [Unknown]
  - Discomfort [Unknown]
  - Oedema [Unknown]
  - Asthenia [Unknown]
  - Fatigue [Unknown]
  - Pain [Unknown]

NARRATIVE: CASE EVENT DATE: 20060628
